FAERS Safety Report 15560395 (Version 8)
Quarter: 2021Q2

REPORT INFORMATION
  Report Type: Report from Study
  Country: FR (occurrence: FR)
  Receive Date: 20181029
  Receipt Date: 20210611
  Transmission Date: 20210716
  Serious: Yes (Hospitalization, Other)
  Sender: FDA-Public Use
  Company Number: PHHO2018FR011558

PATIENT
  Age: 82 Year
  Sex: Male
  Weight: 62 kg

DRUGS (8)
  1. BOLDINE;SODIUM PHOSPHATE;SODIUM SULFATE [Concomitant]
     Indication: NAUSEA
     Dosage: UNK
     Route: 065
     Dates: start: 20180918
  2. PDR001 [Suspect]
     Active Substance: SPARTALIZUMAB
     Indication: METASTATIC MALIGNANT MELANOMA
     Dosage: 400 MG, Q4W
     Route: 042
     Dates: start: 20181017, end: 20181017
  3. PREDNISONE. [Concomitant]
     Active Substance: PREDNISONE
     Indication: ASTHENIA
     Dosage: UNK
     Route: 065
     Dates: start: 20181017
  4. PRIMPERAN [Concomitant]
     Active Substance: METOCLOPRAMIDE HYDROCHLORIDE
     Indication: NAUSEA
     Dosage: UNK
     Route: 065
     Dates: start: 20180718
  5. ACZ885 [Suspect]
     Active Substance: CANAKINUMAB
     Indication: METASTATIC MALIGNANT MELANOMA
     Dosage: 300 MG, Q4W
     Route: 058
     Dates: start: 20181017, end: 20181017
  6. VOGALENE [Concomitant]
     Active Substance: METOPIMAZINE
     Indication: NAUSEA
     Dosage: UNK
     Route: 065
     Dates: start: 20180718
  7. LASILIX [Concomitant]
     Active Substance: FUROSEMIDE
     Indication: DYSPNOEA
     Dosage: UNK
     Route: 065
     Dates: start: 20181022
  8. INEXIUM [Concomitant]
     Active Substance: ESOMEPRAZOLE
     Indication: ASTHENIA
     Dosage: UNK
     Route: 065
     Dates: start: 20181017

REACTIONS (1)
  - Peripheral ischaemia [Recovered/Resolved]

NARRATIVE: CASE EVENT DATE: 20181023
